FAERS Safety Report 23548508 (Version 1)
Quarter: 2024Q1

REPORT INFORMATION
  Report Type: Spontaneous
  Country: US (occurrence: None)
  Receive Date: 20240219
  Receipt Date: 20240219
  Transmission Date: 20240409
  Serious: Yes (Hospitalization)
  Sender: FDA-Public Use
  Company Number: None

PATIENT
  Age: 48 Year
  Sex: Female

DRUGS (1)
  1. CIPROFLOXACIN [Suspect]
     Active Substance: CIPROFLOXACIN
     Dates: start: 20240119, end: 20240121

REACTIONS (3)
  - Drug hypersensitivity [None]
  - Headache [None]
  - Gait disturbance [None]

NARRATIVE: CASE EVENT DATE: 20240121
